FAERS Safety Report 7939521-3 (Version None)
Quarter: 2011Q4

REPORT INFORMATION
  Report Type: 
  Country: None (occurrence: None)
  Receive Date: 20111125
  Receipt Date: 20111107
  Transmission Date: 20120403
  Serious: Yes (Hospitalization)
  Sender: FDA-Public Use
  Company Number: FR-COVIDIEN/TYCO HEALTHCARE/MALLINCKRODT-T201102714

PATIENT
  Sex: Female
  Weight: 70 kg

DRUGS (1)
  1. OPTIJECT [Suspect]
     Indication: PRODUCT USED FOR UNKNOWN INDICATION
     Dosage: UNK, SINGLE
     Route: 065
     Dates: start: 20110914, end: 20110914

REACTIONS (5)
  - PRURITUS [None]
  - SHOCK [None]
  - HYPOTENSION [None]
  - DYSPNOEA [None]
  - RASH [None]
